FAERS Safety Report 4699588-5 (Version None)
Quarter: 2005Q2

REPORT INFORMATION
  Report Type: 
  Country: None (occurrence: None)
  Receive Date: 20050623
  Receipt Date: 20050610
  Transmission Date: 20051028
  Serious: Yes (Hospitalization)
  Sender: FDA-Public Use
  Company Number: 2005088257

PATIENT
  Age: 43 Year
  Sex: Male

DRUGS (2)
  1. RIFABUTIN (RIFABUTIN) [Suspect]
     Indication: PULMONARY TUBERCULOSIS
     Dosage: 300 MG (INTERVAL: EVERY DAY), ORAL
     Route: 048
     Dates: start: 20041126, end: 20041215
  2. ISONIAZID [Suspect]
     Indication: PULMONARY TUBERCULOSIS
     Route: 048
     Dates: end: 20041215

REACTIONS (1)
  - TOXIC SKIN ERUPTION [None]
